FAERS Safety Report 7844259-7 (Version None)
Quarter: 2011Q4

REPORT INFORMATION
  Report Type: 
  Country: None (occurrence: None)
  Receive Date: 20111025
  Receipt Date: 20111012
  Transmission Date: 20120403
  Serious: Yes (Hospitalization)
  Sender: FDA-Public Use
  Company Number: JP-ELI_LILLY_AND_COMPANY-JP201107002884

PATIENT
  Age: 75 Year
  Sex: Female

DRUGS (2)
  1. FORTEO [Suspect]
     Dosage: UNK
     Route: 058
     Dates: start: 20110705, end: 20110801
  2. FORTEO [Suspect]
     Dosage: UNK
     Route: 058
     Dates: end: 20110703

REACTIONS (5)
  - DRUG DOSE OMISSION [None]
  - HOSPITALISATION [None]
  - HEPATIC NEOPLASM MALIGNANT [None]
  - HEPATITIS C [None]
  - HERPES VIRUS INFECTION [None]
